FAERS Safety Report 4274739-5 (Version None)
Quarter: 2004Q1

REPORT INFORMATION
  Report Type: 
  Country: None (occurrence: None)
  Receive Date: 20040120
  Receipt Date: 20040114
  Transmission Date: 20041129
  Serious: Yes (Other)
  Sender: FDA-Public Use
  Company Number: CA-BRISTOL-MYERS SQUIBB COMPANY-12479408

PATIENT
  Age: 73 Year
  Sex: Female

DRUGS (4)
  1. TEQUIN [Suspect]
     Indication: BRONCHITIS
     Route: 048
     Dates: start: 20031101
  2. GLUCOPHAGE [Concomitant]
  3. DIABETA [Concomitant]
  4. AVANDIA [Concomitant]

REACTIONS (1)
  - HYPERGLYCAEMIA [None]
